FAERS Safety Report 15370658 (Version 1)
Quarter: 2018Q3

REPORT INFORMATION
  Report Type: Spontaneous
  Country: US (occurrence: US)
  Receive Date: 20180904
  Receipt Date: 20180904
  Transmission Date: 20181010
  Serious: Yes (Disabling)
  Sender: FDA-Public Use
  Company Number: None

PATIENT
  Age: 28 Year
  Sex: Female
  Weight: 76.2 kg

DRUGS (1)
  1. MIRENA [Suspect]
     Active Substance: LEVONORGESTREL

REACTIONS (9)
  - Dizziness [None]
  - Pain in extremity [None]
  - Dyspareunia [None]
  - Headache [None]
  - Menorrhagia [None]
  - Pain [None]
  - Vaginal discharge [None]
  - Procedural pain [None]
  - Muscle spasms [None]

NARRATIVE: CASE EVENT DATE: 20150630
